FAERS Safety Report 24350598 (Version 1)
Quarter: 2024Q3

REPORT INFORMATION
  Report Type: Report from Study
  Country: DE (occurrence: DE)
  Receive Date: 20240923
  Receipt Date: 20240923
  Transmission Date: 20241016
  Serious: Yes (Life-Threatening, Hospitalization)
  Sender: PFIZER
  Company Number: DE-PFIZER INC-PV202400123370

PATIENT
  Age: 40 Year
  Sex: Female
  Weight: 49 kg

DRUGS (3)
  1. TUCATINIB [Suspect]
     Active Substance: TUCATINIB
     Dosage: 600 MG, DAILY
     Route: 048
     Dates: start: 20231211, end: 20240813
  2. TRASTUZUMAB [Suspect]
     Active Substance: TRASTUZUMAB
     Dosage: UNK
  3. CAPECITABINE [Suspect]
     Active Substance: CAPECITABINE

REACTIONS (1)
  - Headache [Not Recovered/Not Resolved]

NARRATIVE: CASE EVENT DATE: 20240903
